FAERS Safety Report 12326420 (Version 3)
Quarter: 2016Q2

REPORT INFORMATION
  Report Type: Spontaneous
  Country: IE (occurrence: IE)
  Receive Date: 20160503
  Receipt Date: 20160622
  Transmission Date: 20160815
  Serious: Yes (Hospitalization, Disabling, Other)
  Sender: FDA-Public Use
  Company Number: PHFR2016IE003241

PATIENT
  Age: 76 Year
  Sex: Male
  Weight: 88 kg

DRUGS (4)
  1. CHLORAMBUCIL [Concomitant]
     Active Substance: CHLORAMBUCIL
     Indication: CHRONIC LYMPHOCYTIC LEUKAEMIA
     Dosage: 20 MG, FOR 7 DAYS EVERY 28 DAYS
     Route: 048
     Dates: start: 20151221, end: 20160229
  2. ARZERRA [Suspect]
     Active Substance: OFATUMUMAB
     Indication: CHRONIC LYMPHOCYTIC LEUKAEMIA
     Dosage: 300 MG (CYCLE 1)
     Route: 042
     Dates: start: 20160126
  3. ARZERRA [Suspect]
     Active Substance: OFATUMUMAB
     Dosage: 1 MG (CYCLE 2)
     Route: 042
     Dates: start: 20160223
  4. ARZERRA [Suspect]
     Active Substance: OFATUMUMAB
     Dosage: 1 G, (CYCLE 1)
     Route: 042
     Dates: start: 20160202

REACTIONS (8)
  - Aphasia [Not Recovered/Not Resolved]
  - JC virus infection [Not Recovered/Not Resolved]
  - Progressive multifocal leukoencephalopathy [Not Recovered/Not Resolved]
  - Clumsiness [Not Recovered/Not Resolved]
  - Confusional state [Not Recovered/Not Resolved]
  - Headache [Not Recovered/Not Resolved]
  - Cognitive disorder [Not Recovered/Not Resolved]
  - Personality change [Not Recovered/Not Resolved]

NARRATIVE: CASE EVENT DATE: 20160301
